FAERS Safety Report 7083652-X (Version None)
Quarter: 2010Q4

REPORT INFORMATION
  Report Type: 
  Country: None (occurrence: None)
  Receive Date: 20101104
  Receipt Date: 20101022
  Transmission Date: 20110411
  Serious: Yes (Hospitalization)
  Sender: FDA-Public Use
  Company Number: JP-ELI_LILLY_AND_COMPANY-JP201010006534

PATIENT
  Age: 40 Year
  Sex: Female

DRUGS (1)
  1. CYMBALTA [Suspect]
     Indication: MAJOR DEPRESSION
     Dosage: 20 MG, DAILY (1/D)
     Route: 048
     Dates: start: 20101012, end: 20101021

REACTIONS (3)
  - ALTERED STATE OF CONSCIOUSNESS [None]
  - DEPRESSED LEVEL OF CONSCIOUSNESS [None]
  - METABOLIC ACIDOSIS [None]
